FAERS Safety Report 7970559-6 (Version None)
Quarter: 2011Q4

REPORT INFORMATION
  Report Type: 
  Country: None (occurrence: None)
  Receive Date: 20111122
  Receipt Date: 20110808
  Transmission Date: 20120403
  Serious: No
  Sender: FDA-Public Use
  Company Number: PHEH2011US00888

PATIENT
  Age: 61 Year
  Sex: Female

DRUGS (5)
  1. GILENYA [Suspect]
     Dosage: 0.5 MG, UNK, ORAL
     Route: 048
     Dates: start: 20110802
  2. DEXAMETHASONE [Concomitant]
  3. VITAMINS (ASCORBIC ACID, ERGOCALCIFEROL, NICOTINAMIDE, RETINOL, RIBOFL [Concomitant]
  4. URSODIOL [Concomitant]
  5. TOBRAMYCIN [Concomitant]

REACTIONS (2)
  - EAR PAIN [None]
  - LYMPHADENOPATHY [None]
